FAERS Safety Report 25238818 (Version 1)
Quarter: 2025Q2

REPORT INFORMATION
  Report Type: Spontaneous
  Country: CA (occurrence: CA)
  Receive Date: 20250425
  Receipt Date: 20250425
  Transmission Date: 20250716
  Serious: Yes (Life-Threatening, Disabling, Other)
  Sender: ANI
  Company Number: CA-ANIPHARMA-2025-CA-001374

PATIENT
  Age: 65 Year
  Sex: Female

DRUGS (7)
  1. CANDESARTAN CILEXETIL [Suspect]
     Active Substance: CANDESARTAN CILEXETIL
     Indication: Product used for unknown indication
     Route: 048
  2. CALCIUM CARBONATE [Suspect]
     Active Substance: CALCIUM CARBONATE
  3. ATACAND [Suspect]
     Active Substance: CANDESARTAN CILEXETIL
     Route: 048
  4. ONDANSETRON [Suspect]
     Active Substance: ONDANSETRON
  5. ACETAMINOPHEN [Suspect]
     Active Substance: ACETAMINOPHEN
     Route: 048
  6. METHOTREXATE [Suspect]
     Active Substance: METHOTREXATE
     Route: 050
  7. CHOLECALCIFEROL [Suspect]
     Active Substance: CHOLECALCIFEROL

REACTIONS (2)
  - Anxiety [Recovered/Resolved with Sequelae]
  - Fall [Recovered/Resolved with Sequelae]
